FAERS Safety Report 5678872-2 (Version None)
Quarter: 2008Q1

REPORT INFORMATION
  Report Type: 
  Country: None (occurrence: None)
  Receive Date: 20080325
  Receipt Date: 20080313
  Transmission Date: 20080703
  Serious: Yes (Hospitalization)
  Sender: FDA-Public Use
  Company Number: US-AMGEN-STX269806

PATIENT
  Sex: Female

DRUGS (3)
  1. ENBREL [Suspect]
     Indication: RHEUMATOID ARTHRITIS
     Route: 058
     Dates: start: 20000102
  2. METHOTREXATE [Concomitant]
  3. CELECOXIB [Concomitant]

REACTIONS (16)
  - ABSCESS INTESTINAL [None]
  - ARTHROPOD BITE [None]
  - BRONCHITIS [None]
  - DRY EYE [None]
  - DYSPNOEA [None]
  - EPISCLERITIS [None]
  - IMPAIRED HEALING [None]
  - LOCALISED INFECTION [None]
  - MYOCARDIAL INFARCTION [None]
  - NERVOUS SYSTEM NEOPLASM BENIGN [None]
  - OESOPHAGEAL RUPTURE [None]
  - RHEUMATOID ARTHRITIS [None]
  - RHEUMATOID NODULE [None]
  - URINARY TRACT INFECTION [None]
  - VIRAL INFECTION [None]
  - WOUND INFECTION STAPHYLOCOCCAL [None]
